FAERS Safety Report 6975199-3 (Version None)
Quarter: 2010Q3

REPORT INFORMATION
  Report Type: 
  Country: None (occurrence: None)
  Receive Date: 20100910
  Receipt Date: 20090224
  Transmission Date: 20110219
  Serious: No
  Sender: FDA-Public Use
  Company Number: US-WYE-H08336109

PATIENT
  Age: 77 Year
  Sex: Female
  Weight: 54.48 kg

DRUGS (2)
  1. PRISTIQ [Suspect]
     Indication: DEPRESSION
     Route: 048
     Dates: start: 20081201
  2. VITAMINS [Concomitant]

REACTIONS (2)
  - CONDITION AGGRAVATED [None]
  - POLYMYALGIA RHEUMATICA [None]
